FAERS Safety Report 9476087 (Version 1)
Quarter: 2013Q3

REPORT INFORMATION
  Report Type: Spontaneous
  Country: US (occurrence: US)
  Receive Date: 20130826
  Receipt Date: 20130826
  Transmission Date: 20140515
  Serious: Yes (Hospitalization)
  Sender: FDA-Public Use
  Company Number: US-SHIRE-ALL1-2013-05615

PATIENT
  Sex: Female

DRUGS (2)
  1. VYVANSE [Suspect]
     Indication: ATTENTION DEFICIT/HYPERACTIVITY DISORDER
     Dosage: UNK, UNKNOWN
     Route: 048
  2. VYVANSE [Suspect]
     Dosage: 50 MG, UNKNOWN
     Route: 048

REACTIONS (4)
  - Suicidal behaviour [Recovered/Resolved]
  - Alcohol use [Recovered/Resolved]
  - Substance use [Recovered/Resolved]
  - Drug effect decreased [Recovered/Resolved]
